FAERS Safety Report 14302917 (Version 1)
Quarter: 2017Q4

REPORT INFORMATION
  Report Type: Spontaneous
  Country: US (occurrence: US)
  Receive Date: 20171219
  Receipt Date: 20171219
  Transmission Date: 20180321
  Serious: Yes (Other)
  Sender: FDA-Public Use
  Company Number: US-BAYER-2017-240338

PATIENT
  Age: 65 Year
  Sex: Female
  Weight: 48 kg

DRUGS (8)
  1. ALKA-SELTZER PLUS SEVERE COLD AND FLU FORMULA [Suspect]
     Active Substance: ACETAMINOPHEN\CHLORPHENIRAMINE\DEXTROMETHORPHAN\PHENYLEPHRINE
     Indication: NASAL CONGESTION
     Dosage: 0.5 DF, PRN
     Route: 048
  2. CLARITIN-D 24 HOUR [Suspect]
     Active Substance: LORATADINE\PSEUDOEPHEDRINE SULFATE
     Indication: NASAL CONGESTION
     Dosage: 1 DF, QD
     Route: 048
     Dates: start: 20171114, end: 20171204
  3. ALKA-SELTZER PLUS DAY NON DROWSY COLD MEDICINE CITRUS [Suspect]
     Active Substance: ASPIRIN\DEXTROMETHORPHAN HYDROBROMIDE\PHENYLEPHRINE BITARTRATE
     Indication: NASAL CONGESTION
     Dosage: 0.5 DF, PRN
     Route: 048
  4. ALKA-SELTZER PLUS COLD FORMULA DAY/NIGHT EFFERVESCENT COMBI NIGHT (ASPIRIN\DEXTROMETHORPHAN\DOXYLAMINE\PHENYLEPHRINE) [Suspect]
     Active Substance: ASPIRIN\DEXTROMETHORPHAN\DOXYLAMINE\PHENYLEPHRINE
     Indication: NASAL CONGESTION
     Dosage: 0.5 DF, PRN
     Route: 048
  5. VITAMIN C [Concomitant]
     Active Substance: ASCORBIC ACID
     Dosage: UNK
  6. VITAMIN D [Concomitant]
     Active Substance: CHOLECALCIFEROL
     Dosage: UNK
  7. MAGNESIUM [Concomitant]
     Active Substance: MAGNESIUM
     Dosage: UNK
  8. L-TYROSINE [Concomitant]
     Dosage: UNK

REACTIONS (9)
  - Toxicity to various agents [Not Recovered/Not Resolved]
  - Nausea [Not Recovered/Not Resolved]
  - Amnesia [Not Recovered/Not Resolved]
  - Anxiety [Not Recovered/Not Resolved]
  - Somnolence [Unknown]
  - Confusional state [Not Recovered/Not Resolved]
  - Decreased appetite [Not Recovered/Not Resolved]
  - Hypertension [Not Recovered/Not Resolved]
  - Underdose [Unknown]

NARRATIVE: CASE EVENT DATE: 20171204
